FAERS Safety Report 7790691-X (Version None)
Quarter: 2011Q3

REPORT INFORMATION
  Report Type: 
  Country: None (occurrence: None)
  Receive Date: 20110930
  Receipt Date: 20110927
  Transmission Date: 20111222
  Serious: Yes (Hospitalization)
  Sender: FDA-Public Use
  Company Number: BR-ABBOTT-11P-020-0858482-00

PATIENT
  Sex: Female
  Weight: 71 kg

DRUGS (12)
  1. CORTICOSTEROIDS [Concomitant]
     Indication: RHEUMATOID ARTHRITIS
     Route: 048
  2. OMEPRAZOLE [Concomitant]
     Indication: GASTRIC DISORDER
     Route: 048
  3. HUMIRA [Suspect]
     Indication: RHEUMATOID ARTHRITIS
     Route: 058
     Dates: start: 20080608, end: 20110501
  4. CLOMIPRAMINE HYDROCHLORIDE [Concomitant]
     Indication: PANIC DISORDER
     Route: 048
  5. CIMETIDINE [Concomitant]
     Indication: GASTRIC DISORDER
     Dosage: TWO TABLETS DAILY
     Route: 048
  6. OMEPRAZOLE [Concomitant]
     Indication: PROPHYLAXIS
  7. HYDROCHLOROTHIAZIDE [Concomitant]
     Indication: SWELLING
     Route: 048
  8. DICLOFENAC POTASSIUM [Concomitant]
     Indication: INFLAMMATION
     Route: 048
  9. ATENOLOL [Concomitant]
     Indication: HYPERTENSION
     Route: 048
  10. ACETYLSALICYLIC ACID SRT [Concomitant]
     Indication: CEREBROVASCULAR ACCIDENT
     Dosage: ONCE DAILY AFTER LUNCH
     Route: 048
  11. DEFLAZACORT [Concomitant]
     Indication: RHEUMATOID ARTHRITIS
     Route: 048
  12. HUMIRA [Suspect]
     Route: 058

REACTIONS (3)
  - BLOOD CHOLESTEROL INCREASED [None]
  - HIATUS HERNIA [None]
  - COUGH [None]
